FAERS Safety Report 7289424-5 (Version None)
Quarter: 2011Q1

REPORT INFORMATION
  Report Type: 
  Country: None (occurrence: None)
  Receive Date: 20110211
  Receipt Date: 20110107
  Transmission Date: 20110831
  Serious: Yes (Death, Other)
  Sender: FDA-Public Use
  Company Number: US-BAYER-200923798NA

PATIENT
  Sex: Male
  Weight: 69.8 kg

DRUGS (38)
  1. UNSPECIFIED GADOLINIUM BASED CONTRAST AGENT [Suspect]
     Indication: NUCLEAR MAGNETIC RESONANCE IMAGING
     Dosage: UNK
     Dates: start: 20000205, end: 20000205
  2. UNSPECIFIED GADOLINIUM BASED CONTRAST AGENT [Suspect]
     Dosage: UNK
     Dates: start: 20000505, end: 20000505
  3. CLONIDINE [Concomitant]
  4. EPOGEN [Concomitant]
  5. ZEMPLAR [Concomitant]
  6. ASPIRIN [Concomitant]
  7. CORTISONE ACETATE [Concomitant]
  8. OPTIMARK [Suspect]
     Indication: NUCLEAR MAGNETIC RESONANCE IMAGING
  9. MULTIHANCE [Suspect]
     Indication: NUCLEAR MAGNETIC RESONANCE IMAGING
  10. PLAQUENIL [Concomitant]
  11. MICARDIS [Concomitant]
  12. PREDNISONE [Concomitant]
  13. MINOXIDIL [Concomitant]
  14. DARBEPOETIN ALFA [Concomitant]
  15. MAGNEVIST [Suspect]
     Indication: NUCLEAR MAGNETIC RESONANCE IMAGING
     Route: 042
     Dates: start: 20060726, end: 20060726
  16. NORVASC [Concomitant]
  17. AMIODARONE [Concomitant]
  18. UNSPECIFIED GADOLINIUM BASED CONTRAST AGENT [Suspect]
     Indication: ANGIOGRAM
     Dates: start: 20001001, end: 20001001
  19. UNSPECIFIED GADOLINIUM BASED CONTRAST AGENT [Suspect]
     Dosage: UNK
     Dates: start: 20011217, end: 20011217
  20. PROHANCE [Suspect]
     Indication: NUCLEAR MAGNETIC RESONANCE IMAGING
  21. PERCOCET [Concomitant]
  22. HECTOROL [Concomitant]
  23. COREG [Concomitant]
  24. DIGOXIN [Concomitant]
  25. MAGNEVIST [Suspect]
     Route: 042
     Dates: start: 20060809, end: 20060809
  26. FLORINEF [Concomitant]
  27. UNSPECIFIED GADOLINIUM BASED CONTRAST AGENT [Suspect]
     Dosage: UNK
     Dates: start: 20060714, end: 20060714
  28. IMURAN [Concomitant]
  29. RENAGEL [Concomitant]
  30. PROCARDIA [Concomitant]
  31. VANCOMYCIN [Concomitant]
  32. LOPRESSOR [Concomitant]
  33. OMNISCAN [Suspect]
     Indication: NUCLEAR MAGNETIC RESONANCE IMAGING
  34. PHOSLO [Concomitant]
  35. LANTHANUM CARBONATE [Concomitant]
  36. RENAPHRO [Concomitant]
  37. FERRLECIT [Concomitant]
  38. TUMS [CALCIUM CARBONATE] [Concomitant]

REACTIONS (18)
  - JOINT RANGE OF MOTION DECREASED [None]
  - ARTHRALGIA [None]
  - JOINT STIFFNESS [None]
  - SKIN FIBROSIS [None]
  - MUSCULAR WEAKNESS [None]
  - SKIN DISCOLOURATION [None]
  - SKIN HYPERPIGMENTATION [None]
  - NEPHROGENIC SYSTEMIC FIBROSIS [None]
  - FIBROSIS [None]
  - MOBILITY DECREASED [None]
  - OEDEMA PERIPHERAL [None]
  - SKIN HYPERTROPHY [None]
  - MUSCULOSKELETAL STIFFNESS [None]
  - GENERAL PHYSICAL HEALTH DETERIORATION [None]
  - MUSCLE CONTRACTIONS INVOLUNTARY [None]
  - PAIN [None]
  - GAIT DISTURBANCE [None]
  - SKIN INDURATION [None]
